FAERS Safety Report 10056470 (Version 2)
Quarter: 2014Q2

REPORT INFORMATION
  Report Type: Spontaneous
  Country: US (occurrence: US)
  Receive Date: 20140403
  Receipt Date: 20140408
  Transmission Date: 20141212
  Serious: Yes (Hospitalization)
  Sender: FDA-Public Use
  Company Number: US-BAXTER-2014BAX015745

PATIENT
  Age: 78 Year
  Sex: Male

DRUGS (1)
  1. DIANEAL LOW CALCIUM [Suspect]
     Indication: PERITONEAL DIALYSIS
     Dosage: 2 BAGS
     Route: 033
     Dates: start: 2012

REACTIONS (5)
  - White blood cell count increased [Recovered/Resolved]
  - Abasia [Recovered/Resolved]
  - Dysstasia [Recovered/Resolved]
  - Vomiting projectile [Recovered/Resolved]
  - Abdominal pain upper [Recovered/Resolved]
